FAERS Safety Report 24535208 (Version 1)
Quarter: 2024Q4

REPORT INFORMATION
  Report Type: Spontaneous
  Country: US (occurrence: None)
  Receive Date: 20241021
  Receipt Date: 20241021
  Transmission Date: 20250115
  Serious: Yes (Other)
  Sender: Public
  Company Number: None

PATIENT
  Age: 78 Year
  Sex: Female
  Weight: 68 kg

DRUGS (4)
  1. TENECTEPLASE [Suspect]
     Active Substance: TENECTEPLASE
     Indication: Ischaemic stroke
     Dosage: OTHER FREQUENCY : ONCE;?
     Route: 040
     Dates: start: 20241013, end: 20241013
  2. DEVICE [Suspect]
     Active Substance: DEVICE
     Dates: start: 20241012
  3. TICAGRELOR [Concomitant]
     Active Substance: TICAGRELOR
     Dates: start: 20241012
  4. ASPIRIN [Concomitant]
     Active Substance: ASPIRIN

REACTIONS (5)
  - Fall [None]
  - Cerebral haemorrhage [None]
  - Subarachnoid haemorrhage [None]
  - Dysarthria [None]
  - Facial paralysis [None]

NARRATIVE: CASE EVENT DATE: 20241013
